FAERS Safety Report 6550102-9 (Version None)
Quarter: 2010Q1

REPORT INFORMATION
  Report Type: 
  Country: None (occurrence: None)
  Receive Date: 20100125
  Receipt Date: 20100113
  Transmission Date: 20100710
  Serious: Yes (Death, Hospitalization)
  Sender: FDA-Public Use
  Company Number: BE-PFIZER INC-2009308207

PATIENT
  Age: 46 Year
  Sex: Male

DRUGS (1)
  1. SUNITINIB MALATE [Suspect]
     Indication: HEAD AND NECK CANCER
     Dosage: 25 MG, 1X/DAY
     Route: 048
     Dates: start: 20090921, end: 20091126

REACTIONS (2)
  - DISEASE PROGRESSION [None]
  - HEAD AND NECK CANCER [None]
